FAERS Safety Report 4335988-0 (Version None)
Quarter: 2004Q2

REPORT INFORMATION
  Report Type: 
  Country: None (occurrence: None)
  Receive Date: 20040406
  Receipt Date: 20040325
  Transmission Date: 20050107
  Serious: No
  Sender: FDA-Public Use
  Company Number: 04P-167-0251987-00

PATIENT
  Age: 64 Year
  Sex: Female
  Weight: 60.1 kg

DRUGS (10)
  1. HUMIRA [Suspect]
     Indication: RHEUMATOID ARTHRITIS
     Dosage: 40 MG, 1 IN 14 D, SUBCUTANEOUS
     Route: 058
     Dates: start: 20031030
  2. HUMIRA [Suspect]
     Indication: RHEUMATOID ARTHRITIS
     Dosage: 40 MG, 1 IN 14 D, SUBCUTANEOUS
     Route: 058
     Dates: start: 20040316
  3. PREDNISOLONE [Concomitant]
  4. CALCIUM [Concomitant]
  5. ERGOCALCIFEROL [Concomitant]
  6. RISEDRONATE (RISEDRONATE SODIUM) [Concomitant]
  7. TIBOLONE [Concomitant]
  8. LISINOPRIL [Concomitant]
  9. CONDYDRAMOL [Concomitant]
  10. DIHYDROCODEINE BITARTRATE [Concomitant]

REACTIONS (2)
  - LIVER FUNCTION TEST ABNORMAL [None]
  - PRURITUS GENERALISED [None]
